FAERS Safety Report 4711485-5 (Version None)
Quarter: 2005Q3

REPORT INFORMATION
  Report Type: 
  Country: None (occurrence: None)
  Receive Date: 20050711
  Receipt Date: 20050628
  Transmission Date: 20060218
  Serious: Yes (Other)
  Sender: FDA-Public Use
  Company Number: US015527

PATIENT
  Age: 56 Year
  Sex: Female

DRUGS (1)
  1. GABITRIL [Suspect]
     Indication: SLEEP DISORDER
     Dosage: 12 MG QHS ORAL
     Route: 048

REACTIONS (1)
  - CONVULSION [None]
